FAERS Safety Report 7077109-X (Version None)
Quarter: 2010Q4

REPORT INFORMATION
  Report Type: 
  Country: None (occurrence: None)
  Receive Date: 20101101
  Receipt Date: 20101021
  Transmission Date: 20110411
  Serious: Yes (Other)
  Sender: FDA-Public Use
  Company Number: VE-ROCHE-735419

PATIENT
  Sex: Male
  Weight: 62 kg

DRUGS (4)
  1. XELODA [Suspect]
     Indication: COLON CANCER
     Route: 048
     Dates: start: 20101020
  2. TRILEPTAL [Concomitant]
     Indication: EPILEPSY
  3. VALPROIC ACID [Concomitant]
     Indication: EPILEPSY
     Dosage: DRUG REPORTED AS VALTRON
  4. RIVOTRIL [Concomitant]

REACTIONS (3)
  - CONVULSION [None]
  - DIARRHOEA [None]
  - FLUSHING [None]
